FAERS Safety Report 18290041 (Version 3)
Quarter: 2021Q1

REPORT INFORMATION
  Report Type: Spontaneous
  Country: US (occurrence: US)
  Receive Date: 20200921
  Receipt Date: 20210105
  Transmission Date: 20210419
  Serious: No
  Sender: FDA-Public Use
  Company Number: NVSC2020US257107

PATIENT
  Sex: Female

DRUGS (3)
  1. ZOFRAN ODT [Suspect]
     Active Substance: ONDANSETRON HYDROCHLORIDE
     Indication: PRODUCT USED FOR UNKNOWN INDICATION
     Route: 048
  2. ONDANSETRON AUROBINDO [Suspect]
     Active Substance: ONDANSETRON HYDROCHLORIDE
     Indication: VOMITING
     Dosage: 08 MG, UNKNOWN
     Route: 048
     Dates: start: 20140131, end: 20140305
  3. ONDANSETRON. [Suspect]
     Active Substance: ONDANSETRON
     Indication: VOMITING
     Dosage: 08 MG, UNKNOWN
     Route: 048
     Dates: start: 20140131, end: 20140305

REACTIONS (5)
  - Product use issue [Unknown]
  - Injury [Unknown]
  - Anxiety [Unknown]
  - Maternal exposure during pregnancy [Unknown]
  - Emotional distress [Unknown]
